FAERS Safety Report 9332567 (Version 1)
Quarter: 2013Q2

REPORT INFORMATION
  Report Type: Spontaneous
  Country: JP (occurrence: None)
  Receive Date: 20130603
  Receipt Date: 20130603
  Transmission Date: 20140414
  Serious: Yes (Other)
  Sender: FDA-Public Use
  Company Number: 2013P1006428

PATIENT
  Age: 60 Year
  Sex: Male

DRUGS (1)
  1. PHENOBARBITAL [Suspect]

REACTIONS (3)
  - Drug reaction with eosinophilia and systemic symptoms [None]
  - Human herpesvirus 6 infection [None]
  - Cytomegalovirus infection [None]
